FAERS Safety Report 9335538 (Version 2)
Quarter: 2013Q3

REPORT INFORMATION
  Report Type: Report from Study
  Country: JP (occurrence: JP)
  Receive Date: 20130605
  Receipt Date: 20130703
  Transmission Date: 20140515
  Serious: Yes (Other)
  Sender: FDA-Public Use
  Company Number: JP-GLAXOSMITHKLINE-B0872735A

PATIENT
  Age: 81 Year
  Sex: Female
  Weight: 49 kg

DRUGS (35)
  1. SAMTIREL [Suspect]
     Indication: PNEUMOCYSTIS JIROVECII PNEUMONIA
     Dosage: 1500MG PER DAY
     Route: 048
     Dates: start: 20120824, end: 20121031
  2. PANTOSIN [Suspect]
     Indication: PRODUCT USED FOR UNKNOWN INDICATION
     Dosage: .5G THREE TIMES PER DAY
     Route: 048
     Dates: start: 20120824, end: 20120904
  3. PANTOSIN [Suspect]
     Indication: PRODUCT USED FOR UNKNOWN INDICATION
     Dosage: 100MG THREE TIMES PER DAY
     Route: 048
     Dates: start: 20120905, end: 20121017
  4. MAGLAX [Suspect]
     Indication: PRODUCT USED FOR UNKNOWN INDICATION
     Dosage: .6G THREE TIMES PER DAY
     Route: 048
     Dates: start: 20120830, end: 20120904
  5. MAGLAX [Suspect]
     Indication: PRODUCT USED FOR UNKNOWN INDICATION
     Dosage: 660MG THREE TIMES PER DAY
     Route: 048
     Dates: start: 20120905, end: 20121017
  6. PARIET [Suspect]
     Indication: PRODUCT USED FOR UNKNOWN INDICATION
     Dosage: 10MG PER DAY
     Route: 048
     Dates: start: 20120824
  7. GASMOTIN [Suspect]
     Indication: PRODUCT USED FOR UNKNOWN INDICATION
     Dosage: 5MG THREE TIMES PER DAY
     Route: 048
     Dates: start: 20120919, end: 20120924
  8. DAIPHEN [Suspect]
     Indication: PNEUMOCYSTIS JIROVECII PNEUMONIA
     Dosage: 4.5IUAX TWICE PER DAY
     Route: 048
     Dates: start: 20120724, end: 20120813
  9. PREDONINE [Suspect]
     Indication: PRODUCT USED FOR UNKNOWN INDICATION
     Route: 048
     Dates: start: 20120713, end: 20120715
  10. PREDONINE [Suspect]
     Indication: PRODUCT USED FOR UNKNOWN INDICATION
     Route: 048
     Dates: start: 20120719, end: 20120721
  11. PREDONINE [Suspect]
     Indication: PRODUCT USED FOR UNKNOWN INDICATION
     Dosage: 20MG TWICE PER DAY
     Route: 048
     Dates: start: 20120724
  12. PREDONINE [Suspect]
     Indication: PRODUCT USED FOR UNKNOWN INDICATION
     Dosage: 10MG TWICE PER DAY
     Route: 048
     Dates: start: 20120729
  13. PREDONINE [Suspect]
     Indication: PRODUCT USED FOR UNKNOWN INDICATION
     Route: 048
     Dates: end: 20120906
  14. PREDONINE [Suspect]
     Indication: PRODUCT USED FOR UNKNOWN INDICATION
     Route: 048
     Dates: start: 20120907, end: 20120919
  15. PREDONINE [Suspect]
     Indication: PRODUCT USED FOR UNKNOWN INDICATION
     Dosage: 10MG PER DAY
     Route: 048
     Dates: start: 20120920, end: 20120927
  16. PREDONINE [Suspect]
     Indication: PRODUCT USED FOR UNKNOWN INDICATION
     Dosage: 5MG PER DAY
     Route: 048
     Dates: start: 20120928
  17. PREDNISOLONE [Suspect]
     Indication: PRODUCT USED FOR UNKNOWN INDICATION
     Dosage: 3MG PER DAY
     Route: 048
     Dates: start: 20120928, end: 20121019
  18. PREDNISOLONE [Suspect]
     Indication: PRODUCT USED FOR UNKNOWN INDICATION
     Route: 048
     Dates: start: 20121020, end: 20121026
  19. PREDNISOLONE [Suspect]
     Indication: PRODUCT USED FOR UNKNOWN INDICATION
     Route: 048
     Dates: start: 20121027
  20. TRAMCET [Suspect]
     Indication: PRODUCT USED FOR UNKNOWN INDICATION
     Dosage: 1IUAX TWICE PER DAY
     Route: 048
     Dates: start: 20120824, end: 20120910
  21. CELECOX [Suspect]
     Indication: PRODUCT USED FOR UNKNOWN INDICATION
     Dosage: 100MG TWICE PER DAY
     Route: 048
     Dates: start: 20120824, end: 20120919
  22. LYRICA [Suspect]
     Indication: PRODUCT USED FOR UNKNOWN INDICATION
     Dosage: 75MG TWICE PER DAY
     Route: 048
     Dates: start: 20120824
  23. OPALMON [Suspect]
     Indication: PRODUCT USED FOR UNKNOWN INDICATION
     Dosage: 5MCG THREE TIMES PER DAY
     Route: 048
     Dates: start: 20120824
  24. PROCYLIN [Suspect]
     Indication: PRODUCT USED FOR UNKNOWN INDICATION
     Dosage: 20MCG THREE TIMES PER DAY
     Route: 048
     Dates: start: 20120824
  25. MAGMITT [Suspect]
     Indication: PRODUCT USED FOR UNKNOWN INDICATION
     Dosage: 500MG THREE TIMES PER DAY
     Route: 048
     Dates: start: 20120824, end: 20120829
  26. JUVELA [Suspect]
     Indication: PRODUCT USED FOR UNKNOWN INDICATION
     Dosage: 200MG TWICE PER DAY
     Route: 048
     Dates: start: 20120824, end: 20120829
  27. BIO-THREE [Suspect]
     Indication: PRODUCT USED FOR UNKNOWN INDICATION
     Dosage: 1G TWICE PER DAY
     Route: 048
     Dates: start: 20120824, end: 20120829
  28. METHYCOBAL [Suspect]
     Indication: PRODUCT USED FOR UNKNOWN INDICATION
     Dosage: 500MCG THREE TIMES PER DAY
     Route: 048
     Dates: start: 20120824, end: 20120829
  29. NEUROTROPIN [Suspect]
     Indication: PRODUCT USED FOR UNKNOWN INDICATION
     Dosage: 4IU TWICE PER DAY
     Route: 048
     Dates: start: 20120824, end: 20120829
  30. DAIPHEN [Concomitant]
     Dates: start: 20120724, end: 20120813
  31. ACTONEL [Concomitant]
     Route: 048
     Dates: start: 20120905, end: 20121107
  32. LECICARBON [Concomitant]
     Dosage: 1IUAX PER DAY
     Route: 054
     Dates: start: 20120907, end: 20120907
  33. PRIMPERAN [Concomitant]
     Dosage: 10MG PER DAY
     Route: 042
     Dates: start: 20120909, end: 20120909
  34. BIO-THREE [Concomitant]
     Dosage: 2IUAX THREE TIMES PER DAY
     Route: 048
     Dates: start: 20121001, end: 20121008
  35. SENNOSIDE [Concomitant]
     Dosage: 24MG PER DAY
     Route: 048
     Dates: start: 20120824, end: 20121016

REACTIONS (6)
  - Enteritis infectious [Recovering/Resolving]
  - Diarrhoea [Recovered/Resolved]
  - Skin ulcer [Recovering/Resolving]
  - Paronychia [Recovered/Resolved]
  - Vomiting [Recovering/Resolving]
  - Pyrexia [Recovered/Resolved]
